FAERS Safety Report 17800878 (Version 4)
Quarter: 2021Q2

REPORT INFORMATION
  Report Type: Spontaneous
  Country: US (occurrence: US)
  Receive Date: 20200518
  Receipt Date: 20210414
  Transmission Date: 20210716
  Serious: No
  Sender: FDA-Public Use
  Company Number: US-AMGEN-USASP2020079118

PATIENT
  Sex: Female

DRUGS (22)
  1. FAMOTIDINE. [Concomitant]
     Active Substance: FAMOTIDINE
     Dosage: 40 MILLIGRAM
  2. HYDROXYCHLOROQUINE [Concomitant]
     Active Substance: HYDROXYCHLOROQUINE
     Dosage: 200 MILLIGRAM
  3. DULOXETINE. [Concomitant]
     Active Substance: DULOXETINE
     Dosage: 20 MILLIGRAM
  4. ENBREL [Suspect]
     Active Substance: ETANERCEPT
     Dosage: 50 MILLIGRAM, QWK
     Route: 058
  5. ENBREL [Suspect]
     Active Substance: ETANERCEPT
     Dosage: 50 MILLIGRAM, QWK
     Route: 058
  6. RANITIDINE. [Concomitant]
     Active Substance: RANITIDINE
     Dosage: 150 MILLIGRAM
  7. OMEPRAZOLE. [Concomitant]
     Active Substance: OMEPRAZOLE
     Dosage: 40 MILLIGRAM
  8. METOPROLOL SUCCINATE. [Concomitant]
     Active Substance: METOPROLOL SUCCINATE
     Dosage: 200 MILLIGRAM
  9. PREDNISONE. [Concomitant]
     Active Substance: PREDNISONE
     Dosage: 20 MILLIGRAM
  10. IRBESARTAN. [Concomitant]
     Active Substance: IRBESARTAN
     Dosage: 300 MILLIGRAM
  11. MONTELUKAST [Concomitant]
     Active Substance: MONTELUKAST SODIUM
     Dosage: 10 MILLIGRAM
  12. OXYCODONE/APAP [Concomitant]
     Active Substance: ACETAMINOPHEN\OXYCODONE HYDROCHLORIDE
     Dosage: UNK, (5?325 MG)
  13. OXYCODONE [Concomitant]
     Active Substance: OXYCODONE
     Dosage: 10 MILLIGRAM
  14. ENBREL [Suspect]
     Active Substance: ETANERCEPT
     Indication: RHEUMATOID ARTHRITIS
     Dosage: 50 MILLIGRAM, QWK
     Route: 058
  15. NAPROXEN. [Concomitant]
     Active Substance: NAPROXEN
     Dosage: 500 MILLIGRAM
  16. FUROSEMIDE. [Concomitant]
     Active Substance: FUROSEMIDE
     Dosage: 20 MILLIGRAM
  17. METFORMIN [Concomitant]
     Active Substance: METFORMIN HYDROCHLORIDE
     Dosage: 500 MILLIGRAM
  18. GABAPENTIN. [Concomitant]
     Active Substance: GABAPENTIN
     Dosage: UNK
  19. HYDROCODONE BITARTRATE AND ACETAMINOPHEN [Concomitant]
     Active Substance: ACETAMINOPHEN\HYDROCODONE BITARTRATE
     Dosage: UNK, (5?325 MG)
  20. KLOR?CON [Concomitant]
     Active Substance: POTASSIUM CHLORIDE
     Dosage: 8 MILLIEQUIVALENT
  21. LORAZEPAM. [Concomitant]
     Active Substance: LORAZEPAM
     Dosage: 1 MILLIGRAM
  22. LOSARTAN POTASSIUM. [Concomitant]
     Active Substance: LOSARTAN POTASSIUM
     Dosage: 50 MILLIGRAM

REACTIONS (7)
  - Blood glucose abnormal [Not Recovered/Not Resolved]
  - Drug ineffective [Unknown]
  - Blister [Not Recovered/Not Resolved]
  - Device delivery system issue [Unknown]
  - Pain [Not Recovered/Not Resolved]
  - Osteoarthritis [Not Recovered/Not Resolved]
  - Fall [Not Recovered/Not Resolved]
